FAERS Safety Report 21008891 (Version 1)
Quarter: 2022Q2

REPORT INFORMATION
  Report Type: Spontaneous
  Country: CA (occurrence: CA)
  Receive Date: 20220627
  Receipt Date: 20220627
  Transmission Date: 20220721
  Serious: Yes (Other)
  Sender: FDA-Public Use
  Company Number: CA-TEVA-2022-CA-2048844

PATIENT
  Age: 21 Year
  Sex: Female

DRUGS (2)
  1. GABAPENTIN [Suspect]
     Active Substance: GABAPENTIN
     Indication: Neuralgia
     Route: 065
  2. PREDNISONE [Suspect]
     Active Substance: PREDNISONE
     Indication: Product used for unknown indication
     Route: 065

REACTIONS (5)
  - Neuromyelitis optica spectrum disorder [Recovered/Resolved]
  - Abortion spontaneous [Recovered/Resolved]
  - Drug ineffective for unapproved indication [Recovered/Resolved]
  - Exposure during pregnancy [Recovered/Resolved]
  - Off label use [Recovered/Resolved]
